FAERS Safety Report 7913554-5 (Version None)
Quarter: 2011Q4

REPORT INFORMATION
  Report Type: 
  Country: None (occurrence: None)
  Receive Date: 20111110
  Receipt Date: 20111026
  Transmission Date: 20120403
  Serious: Yes (Hospitalization)
  Sender: FDA-Public Use
  Company Number: 2011SGN00208

PATIENT
  Age: 33 Year
  Sex: Female
  Weight: 48.1 kg

DRUGS (14)
  1. BLEOMYCIN SULFATE [Suspect]
     Indication: HODGKIN'S DISEASE
     Dosage: 10 UNITS/M2, Q14D, INTRAVENOUS
     Route: 042
     Dates: start: 20110408, end: 20110826
  2. DOXORUBICIN HCL [Suspect]
     Indication: HODGKIN'S DISEASE
     Dosage: 25 MG/M2, Q14D, INTRAVENOUS
     Route: 042
     Dates: start: 20110408, end: 20110909
  3. VINBLASTINE SULFATE [Suspect]
     Indication: HODGKIN'S DISEASE
     Dosage: 6 MG/M2, Q14D, INTRAVENOUS
     Route: 042
     Dates: start: 20110408, end: 20110909
  4. PHENERGAN [Concomitant]
  5. BRENTUXIMAB VEDOTIN BRENTUXIMAB VEDOTIN) INJECTION [Suspect]
     Indication: HODGKIN'S DISEASE
     Dosage: 1.2 MG/KG, Q 14D, INTRAVENOUS
     Route: 042
     Dates: start: 20110408, end: 20110909
  6. ATIVAN [Concomitant]
  7. DACARBAZINE [Suspect]
     Indication: HODGKIN'S DISEASE
     Dosage: 375MG/M2, Q14D, INTRAVENOUS
     Route: 042
     Dates: start: 20110408, end: 20110909
  8. ANUSON (BISMUTH HYDROXIDE, BISMUTH SUBGALLATE, BORIC ACID, MYROXYLON B [Concomitant]
  9. TRAMADOL HCL [Concomitant]
  10. GRANISETRON (GRANISETRON HYDROCHLORIDE) [Concomitant]
  11. LACTULOSE [Concomitant]
  12. MAGNESIUM PLUS (MAGNESIUM) [Concomitant]
  13. ZOFRAN [Concomitant]
  14. PROTEIN SUPPLEMENTS [Concomitant]

REACTIONS (22)
  - ACUTE RESPIRATORY FAILURE [None]
  - PNEUMONITIS [None]
  - GENITAL HERPES [None]
  - PULMONARY ALVEOLAR HAEMORRHAGE [None]
  - PULMONARY TOXICITY [None]
  - WHITE BLOOD CELL COUNT INCREASED [None]
  - ORTHOSTATIC HYPOTENSION [None]
  - PNEUMOTHORAX [None]
  - PULMONARY OEDEMA [None]
  - LUNG INFECTION [None]
  - TACHYCARDIA [None]
  - PERICARDIAL EFFUSION [None]
  - BLOOD LACTIC ACID INCREASED [None]
  - PATHOGEN RESISTANCE [None]
  - ATELECTASIS [None]
  - PNEUMONIA [None]
  - DIFFUSE ALVEOLAR DAMAGE [None]
  - PNEUMOCYSTIS JIROVECI PNEUMONIA [None]
  - LUNG INFILTRATION [None]
  - NEUTROPHIL PERCENTAGE INCREASED [None]
  - PNEUMOMEDIASTINUM [None]
  - SUBCUTANEOUS EMPHYSEMA [None]
